FAERS Safety Report 8314396-1 (Version None)
Quarter: 2012Q2

REPORT INFORMATION
  Report Type: 
  Country: None (occurrence: None)
  Receive Date: 20120426
  Receipt Date: 20120423
  Transmission Date: 20120825
  Serious: Yes (Other)
  Sender: FDA-Public Use
  Company Number: FR-ROCHE-1046771

PATIENT
  Sex: Female
  Weight: 81 kg

DRUGS (10)
  1. RABEPRAZOLE SODIUM [Concomitant]
  2. RENAGEL [Suspect]
     Indication: PRODUCT USED FOR UNKNOWN INDICATION
  3. CINACALCET HYDROCHLORIDE [Suspect]
     Indication: HYPERPARATHYROIDISM
     Route: 048
  4. PEGASYS [Suspect]
     Indication: HEPATITIS C
     Dosage: 135
     Route: 058
     Dates: start: 20110921
  5. REBETOL [Suspect]
     Indication: HEPATITIS C
     Route: 048
  6. CALCIUM CARBONATE [Suspect]
     Indication: HYPERPARATHYROIDISM
     Route: 048
  7. ALUMINUM HYDROXIDE AND MAGNESIUM TRISILICATE [Concomitant]
  8. KAYEXALATE [Concomitant]
  9. INCIVO [Suspect]
     Indication: HEPATITIS C
     Route: 048
     Dates: start: 20120207
  10. UN ALFA [Suspect]
     Indication: HYPERPARATHYROIDISM
     Route: 048

REACTIONS (1)
  - IMPAIRED HEALING [None]
